FAERS Safety Report 20612729 (Version 1)
Quarter: 2022Q1

REPORT INFORMATION
  Report Type: Spontaneous
  Country: VE (occurrence: VE)
  Receive Date: 20220318
  Receipt Date: 20220318
  Transmission Date: 20220424
  Serious: Yes (Hospitalization)
  Sender: FDA-Public Use
  Company Number: VE-NOVARTISPH-NVSC2022VE060468

PATIENT
  Sex: Male

DRUGS (1)
  1. GLIVEC [Suspect]
     Active Substance: IMATINIB MESYLATE
     Indication: Chronic myeloid leukaemia
     Dosage: 400 MG (4 X 100MG)
     Route: 065

REACTIONS (4)
  - Condition aggravated [Unknown]
  - Cerebrovascular accident [Unknown]
  - Haematology test abnormal [Unknown]
  - Brain stem haematoma [Unknown]
